FAERS Safety Report 5762885-6 (Version None)
Quarter: 2008Q2

REPORT INFORMATION
  Report Type: 
  Country: None (occurrence: None)
  Receive Date: 20080604
  Receipt Date: 20080521
  Transmission Date: 20081010
  Serious: Yes (Hospitalization)
  Sender: FDA-Public Use
  Company Number: 2008BI006615

PATIENT
  Age: 65 Year
  Sex: Female
  Weight: 58.514 kg

DRUGS (1)
  1. AVONEX [Suspect]
     Indication: MULTIPLE SCLEROSIS
     Dosage: 30 UG;QW;IM
     Route: 030
     Dates: start: 19990101

REACTIONS (9)
  - ABASIA [None]
  - ARTHRALGIA [None]
  - FALL [None]
  - FATIGUE [None]
  - FEMUR FRACTURE [None]
  - HYPERTENSION [None]
  - MEDICAL DEVICE COMPLICATION [None]
  - TIBIA FRACTURE [None]
  - TRAUMATIC ARTHRITIS [None]
